FAERS Safety Report 10086713 (Version 1)
Quarter: 2014Q2

REPORT INFORMATION
  Report Type: Spontaneous
  Country: AT (occurrence: AT)
  Receive Date: 20140418
  Receipt Date: 20140418
  Transmission Date: 20141212
  Serious: Yes (Other)
  Sender: FDA-Public Use
  Company Number: AT-BRISTOL-MYERS SQUIBB COMPANY-20622965

PATIENT
  Age: 56 Year
  Sex: Female

DRUGS (3)
  1. FORXIGA [Suspect]
     Indication: TYPE 2 DIABETES MELLITUS
  2. GLUCOPHAGE [Suspect]
     Indication: TYPE 2 DIABETES MELLITUS
  3. JANUMET [Suspect]
     Indication: TYPE 2 DIABETES MELLITUS

REACTIONS (2)
  - Diabetic coma [Unknown]
  - Blood glucose increased [Unknown]
